FAERS Safety Report 18244541 (Version 16)
Quarter: 2021Q1

REPORT INFORMATION
  Report Type: Other
  Country: DE (occurrence: DE)
  Receive Date: 20200909
  Receipt Date: 20210322
  Transmission Date: 20210419
  Serious: Yes (Other)
  Sender: FDA-Public Use
  Company Number: DE-ROCHE-2669047

PATIENT
  Age: 52 Year
  Sex: Female
  Weight: 62 kg

DRUGS (12)
  1. DEKRISTOL [Concomitant]
     Active Substance: CHOLECALCIFEROL
  2. DOMPERIDONE [Concomitant]
     Active Substance: DOMPERIDONE
  3. IBUPROFEN. [Concomitant]
     Active Substance: IBUPROFEN
  4. SALBUTAMOL [Concomitant]
     Active Substance: ALBUTEROL
  5. OCREVUS [Suspect]
     Active Substance: OCRELIZUMAB
     Indication: RELAPSING-REMITTING MULTIPLE SCLEROSIS
     Dosage: LATEST INFUSION ON 28/OCT/2020
     Route: 042
     Dates: start: 20180523
  6. NOVALGIN (METAMIZOLE SODIUM) [Concomitant]
     Active Substance: METAMIZOLE SODIUM
  7. CANNABIS SATIVA FLOWER [Concomitant]
     Dosage: SEVERAL TIMES PER DAY AND IN THE NIGHT
  8. VOLON A [Concomitant]
     Dates: start: 20200409
  9. OCREVUS [Suspect]
     Active Substance: OCRELIZUMAB
     Route: 042
     Dates: start: 20201028
  10. CORTISONE [Suspect]
     Active Substance: CORTISONE
     Indication: PRODUCT USED FOR UNKNOWN INDICATION
     Dosage: ALTERNATIVE TO VOLON A
     Route: 065
     Dates: start: 20200810, end: 20200813
  11. PANTOPRAZOL [Suspect]
     Active Substance: PANTOPRAZOLE SODIUM
     Indication: PRODUCT USED FOR UNKNOWN INDICATION
     Dosage: AS REQUIRED
     Route: 065
  12. VOLON A [Concomitant]
     Dosage: INTO SPINAL FLUID

REACTIONS (24)
  - Urinary tract infection bacterial [Recovered/Resolved]
  - Asthenia [Recovered/Resolved]
  - Periorbital swelling [Not Recovered/Not Resolved]
  - Dizziness [Recovered/Resolved]
  - Alopecia [Not Recovered/Not Resolved]
  - Paraesthesia [Recovered/Resolved]
  - Fluid retention [Not Recovered/Not Resolved]
  - Initial insomnia [Recovered/Resolved]
  - Body fat disorder [Not Recovered/Not Resolved]
  - Blood cholesterol increased [Recovered/Resolved]
  - Gastritis erosive [Recovered/Resolved]
  - Bone pain [Not Recovered/Not Resolved]
  - Muscular weakness [Recovered/Resolved]
  - Cataract [Not Recovered/Not Resolved]
  - Irritability [Not Recovered/Not Resolved]
  - Arthralgia [Not Recovered/Not Resolved]
  - Dry skin [Not Recovered/Not Resolved]
  - Rash [Recovered/Resolved]
  - Weight increased [Not Recovered/Not Resolved]
  - Muscle spasticity [Not Recovered/Not Resolved]
  - Alopecia [Recovered/Resolved]
  - Cushing^s syndrome [Not Recovered/Not Resolved]
  - Diarrhoea [Recovered/Resolved]
  - Insomnia [Recovered/Resolved]

NARRATIVE: CASE EVENT DATE: 20190430
